FAERS Safety Report 15815272 (Version 1)
Quarter: 2019Q1

REPORT INFORMATION
  Report Type: Spontaneous
  Country: IT (occurrence: IT)
  Receive Date: 20190112
  Receipt Date: 20190112
  Transmission Date: 20190417
  Serious: Yes (Other)
  Sender: FDA-Public Use
  Company Number: IT-TEVA-2019-IT-997634

PATIENT
  Age: 64 Year
  Sex: Male

DRUGS (1)
  1. AMIKACINA TEVA [Suspect]
     Active Substance: AMIKACIN
     Dosage: 1 GRAM DAILY;
     Route: 042
     Dates: start: 20181213, end: 20181223

REACTIONS (1)
  - Hypoacusis [Unknown]

NARRATIVE: CASE EVENT DATE: 20181223
